FAERS Safety Report 19505514 (Version 1)
Quarter: 2021Q3

REPORT INFORMATION
  Report Type: Spontaneous
  Country: US (occurrence: US)
  Receive Date: 20210707
  Receipt Date: 20210707
  Transmission Date: 20211014
  Serious: Yes (Hospitalization)
  Sender: FDA-Public Use
  Company Number: None

PATIENT
  Age: 34 Year
  Sex: Female
  Weight: 73.9 kg

DRUGS (9)
  1. CELEXA [Concomitant]
     Active Substance: CITALOPRAM HYDROBROMIDE
  2. PYRIDOXINE (VITAMIN B6) [Concomitant]
     Active Substance: PYRIDOXINE HYDROCHLORIDE
  3. USTEKINUMAB [Suspect]
     Active Substance: USTEKINUMAB
  4. SODIUM BICARBONATE. [Concomitant]
     Active Substance: SODIUM BICARBONATE
  5. IRON POLYSACCHARIDE COMPLEX (FERREX) [Concomitant]
  6. DIPHENOXYLATE?ATROPINE (LOMOTIL) [Concomitant]
  7. ERGOCALCIFEROL. [Concomitant]
     Active Substance: ERGOCALCIFEROL
  8. SODIUM CHLORIDE. [Concomitant]
     Active Substance: SODIUM CHLORIDE
  9. STELARA [Concomitant]
     Active Substance: USTEKINUMAB

REACTIONS (2)
  - Pancreatitis acute [None]
  - Abdominal distension [None]

NARRATIVE: CASE EVENT DATE: 20200413
